FAERS Safety Report 23577179 (Version 4)
Quarter: 2024Q1

REPORT INFORMATION
  Report Type: Spontaneous
  Country: BR (occurrence: BR)
  Receive Date: 20240228
  Receipt Date: 20240312
  Transmission Date: 20240410
  Serious: Yes (Other)
  Sender: FDA-Public Use
  Company Number: BR-002147023-NVSC2023BR273194

PATIENT
  Sex: Female
  Weight: 63 kg

DRUGS (6)
  1. KISQALI [Suspect]
     Active Substance: RIBOCICLIB
     Indication: Breast cancer
     Dosage: 3 DOSAGE FORM, QD (21 DAYS AND BREAK OF 7 DAYS)
     Route: 048
     Dates: start: 202309
  2. KISQALI [Suspect]
     Active Substance: RIBOCICLIB
     Dosage: 2 DOSAGE FORM, QD (21 DAYS AND BREAK OF 7 DAYS)
     Route: 048
     Dates: start: 20240221
  3. DONEPEZIL HYDROCHLORIDE [Concomitant]
     Active Substance: DONEPEZIL HYDROCHLORIDE
     Indication: Memory impairment
     Dosage: 1 DOSAGE FORM, QD (ABOUT 2 OR 3 YEARS AG)
     Route: 048
  4. EXODUS [Concomitant]
     Indication: Memory impairment
     Dosage: 1 DOSAGE FORM, QD (ABOUT 2 OR 3 YEARS AGO)
     Route: 048
  5. FULVESTRANT [Concomitant]
     Active Substance: FULVESTRANT
     Indication: Breast cancer
     Dosage: 10 ML (APPLICATION EVERY 28 DAYS)
     Route: 065
     Dates: start: 2019
  6. PROLIA [Concomitant]
     Active Substance: DENOSUMAB
     Indication: Bone disorder
     Dosage: 1 DOSAGE FORM (EVERY 6 MONTHS)
     Route: 065
     Dates: start: 2019

REACTIONS (10)
  - Pneumonia [Recovered/Resolved]
  - COVID-19 [Recovered/Resolved]
  - Pigmentation disorder [Recovered/Resolved]
  - Hypersensitivity [Recovered/Resolved]
  - Skin irritation [Recovered/Resolved]
  - Pruritus [Recovered/Resolved]
  - Pain [Recovered/Resolved]
  - Hypersensitivity [Not Recovered/Not Resolved]
  - Wound [Recovered/Resolved]
  - Alopecia [Not Recovered/Not Resolved]

NARRATIVE: CASE EVENT DATE: 20230101
